FAERS Safety Report 10025065 (Version 6)
Quarter: 2016Q2

REPORT INFORMATION
  Report Type: Spontaneous
  Country: US (occurrence: US)
  Receive Date: 20140320
  Receipt Date: 20160407
  Transmission Date: 20160815
  Serious: Yes (Hospitalization, Other)
  Sender: FDA-Public Use
  Company Number: US-009507513-1403USA008317

PATIENT
  Sex: Male
  Weight: 80.73 kg

DRUGS (6)
  1. PROPECIA [Suspect]
     Active Substance: FINASTERIDE
     Dosage: 1 MG, QD
     Route: 048
     Dates: start: 20081106, end: 20090803
  2. PROPECIA [Suspect]
     Active Substance: FINASTERIDE
     Indication: ALOPECIA
     Dosage: 1 MG, UNK
     Route: 048
     Dates: start: 20010214, end: 20021120
  3. PROPECIA [Suspect]
     Active Substance: FINASTERIDE
     Dosage: 1 MG, UNK
     Route: 048
     Dates: start: 20050127, end: 20051020
  4. FINASTERIDE. [Suspect]
     Active Substance: FINASTERIDE
     Indication: PROSTATISM
  5. PROPECIA [Suspect]
     Active Substance: FINASTERIDE
     Dosage: 1 MG, UNK
     Route: 048
     Dates: start: 20070118, end: 20080802
  6. FINASTERIDE. [Suspect]
     Active Substance: FINASTERIDE
     Indication: ALOPECIA
     Dosage: 5 MG, QD
     Route: 048
     Dates: start: 20080226, end: 20111116

REACTIONS (15)
  - Treatment failure [Unknown]
  - Hypertension [Unknown]
  - Prostate cancer [Not Recovered/Not Resolved]
  - Drug administration error [Unknown]
  - Depression [Unknown]
  - Urinary incontinence [Unknown]
  - Haematuria [Unknown]
  - Organic erectile dysfunction [Not Recovered/Not Resolved]
  - Urinary anastomotic leak [Recovered/Resolved]
  - Device ineffective [Unknown]
  - Hyperlipidaemia [Unknown]
  - Sexual dysfunction [Not Recovered/Not Resolved]
  - Anxiety [Unknown]
  - Complication associated with device [Unknown]
  - Benign prostatic hyperplasia [Unknown]

NARRATIVE: CASE EVENT DATE: 2005
